FAERS Safety Report 7319736-8 (Version None)
Quarter: 2011Q1

REPORT INFORMATION
  Report Type: 
  Country: None (occurrence: None)
  Receive Date: 20110228
  Receipt Date: 20100830
  Transmission Date: 20110831
  Serious: No
  Sender: FDA-Public Use
  Company Number: A0878398A

PATIENT
  Sex: Female

DRUGS (4)
  1. IBUPROFEN [Concomitant]
  2. LAMICTAL [Suspect]
     Indication: DEPRESSION
     Dosage: 100MG PER DAY
     Route: 048
     Dates: start: 20091001, end: 20100809
  3. LOVAZA [Concomitant]
  4. DAILY VITAMIN [Concomitant]

REACTIONS (8)
  - DRUG INEFFECTIVE [None]
  - ANXIETY [None]
  - DECREASED APPETITE [None]
  - POOR QUALITY SLEEP [None]
  - WEIGHT DECREASED [None]
  - ASTHENIA [None]
  - DISSOCIATION [None]
  - IMPATIENCE [None]
